FAERS Safety Report 5520802-8 (Version None)
Quarter: 2007Q4

REPORT INFORMATION
  Report Type: 
  Country: None (occurrence: None)
  Receive Date: 20071119
  Receipt Date: 20071104
  Transmission Date: 20080405
  Serious: Yes (Hospitalization, Other)
  Sender: FDA-Public Use
  Company Number: US-PFIZER INC-2007094947

PATIENT
  Sex: Female
  Weight: 53.1 kg

DRUGS (13)
  1. CHANTIX [Suspect]
     Indication: SMOKING CESSATION THERAPY
     Dates: start: 20071002, end: 20071030
  2. ZOFRAN [Concomitant]
  3. TRANXENE [Concomitant]
  4. ESTROGENS [Concomitant]
  5. SYNTHROID [Concomitant]
  6. PREMARIN [Concomitant]
  7. COMBIVENT [Concomitant]
  8. MONTELUKAST SODIUM [Concomitant]
  9. ATENOLOL [Concomitant]
  10. LEVOXYL [Concomitant]
  11. MACROBID [Concomitant]
  12. LOMOTIL [Concomitant]
  13. SOMA [Concomitant]

REACTIONS (16)
  - ANOREXIA [None]
  - CANDIDIASIS [None]
  - CONSTIPATION [None]
  - DEHYDRATION [None]
  - DIZZINESS [None]
  - DRY SKIN [None]
  - DYSPHONIA [None]
  - FUNGAL INFECTION [None]
  - IMPAIRED DRIVING ABILITY [None]
  - MEMORY IMPAIRMENT [None]
  - THYROID FUNCTION TEST ABNORMAL [None]
  - TREMOR [None]
  - URINARY RETENTION [None]
  - VOMITING [None]
  - WALKING AID USER [None]
  - WEIGHT DECREASED [None]
